FAERS Safety Report 14799142 (Version 1)
Quarter: 2018Q2

REPORT INFORMATION
  Report Type: Spontaneous
  Country: US (occurrence: US)
  Receive Date: 20180424
  Receipt Date: 20180424
  Transmission Date: 20180711
  Serious: No
  Sender: FDA-Public Use
  Company Number: US-SAREPTA THERAPEUTICS, INC-SRP-000004-2017

PATIENT
  Age: 6 Year
  Sex: Male
  Weight: 25.85 kg

DRUGS (2)
  1. EXONDYS 51 [Suspect]
     Active Substance: ETEPLIRSEN
     Indication: DUCHENNE MUSCULAR DYSTROPHY
     Dosage: 2 ML, WEEKLY
     Route: 042
     Dates: start: 20170120
  2. LIDOCAINE CREAM [Concomitant]
     Indication: VASCULAR DEVICE USER
     Dosage: UNK
     Route: 065

REACTIONS (2)
  - Infusion site rash [Recovered/Resolved]
  - Rash papular [Recovered/Resolved]

NARRATIVE: CASE EVENT DATE: 20170121
